FAERS Safety Report 4726987-5 (Version None)
Quarter: 2005Q3

REPORT INFORMATION
  Report Type: 
  Country: None (occurrence: None)
  Receive Date: 20050728
  Receipt Date: 20050718
  Transmission Date: 20060218
  Serious: Yes (Hospitalization, Other)
  Sender: FDA-Public Use
  Company Number: GB-JNJFOC-20050703619

PATIENT
  Sex: Female

DRUGS (14)
  1. REMICADE [Suspect]
     Indication: RHEUMATOID ARTHRITIS
     Route: 042
     Dates: start: 20021003
  2. LEFLUNOMIDE [Concomitant]
     Route: 065
  3. WARFARIN SODIUM [Concomitant]
     Route: 065
  4. DIGOXIN [Concomitant]
     Route: 065
  5. LISINOPRIL [Concomitant]
     Route: 065
  6. PREDNISOLONE [Concomitant]
     Route: 065
  7. TRAMADOL HCL [Concomitant]
     Route: 065
  8. AMITRIPTYLINE HCL [Concomitant]
     Route: 065
  9. AMIODARONE [Concomitant]
     Route: 065
  10. LANSOPRAZOLE [Concomitant]
     Route: 065
  11. FRUSEMIDE [Concomitant]
     Route: 065
  12. ACETAMINOPHEN W/ CODEINE [Concomitant]
     Route: 065
  13. ACETAMINOPHEN W/ CODEINE [Concomitant]
     Route: 065
  14. LACTULOSE [Concomitant]
     Route: 065

REACTIONS (2)
  - DYSPNOEA [None]
  - PALPITATIONS [None]
